FAERS Safety Report 4656810-9 (Version None)
Quarter: 2005Q2

REPORT INFORMATION
  Report Type: 
  Country: None (occurrence: None)
  Receive Date: 20050506
  Receipt Date: 20050501
  Transmission Date: 20051028
  Serious: Yes (Hospitalization)
  Sender: FDA-Public Use
  Company Number: CHPA2005US01204

PATIENT
  Age: 38 Year
  Sex: Female
  Weight: 65.8 kg

DRUGS (3)
  1. TRANSDERM SCOP [Suspect]
     Indication: NECK PAIN
     Dosage: 1 PATCH, Q72H, TRANSDERMAL
     Route: 062
     Dates: start: 20050401
  2. ANALGESICS (NO INGREDIENTS/SUBSTANCES) [Concomitant]
  3. DRUG USED IN DIABETES (NO INGREDIENTS/SUBSTANCES) [Concomitant]

REACTIONS (5)
  - BLISTER [None]
  - MEMORY IMPAIRMENT [None]
  - PAIN [None]
  - RASH [None]
  - SOMNOLENCE [None]
